FAERS Safety Report 25626589 (Version 2)
Quarter: 2025Q3

REPORT INFORMATION
  Report Type: Report from Study
  Country: CA (occurrence: CA)
  Receive Date: 20250731
  Receipt Date: 20250808
  Transmission Date: 20251020
  Serious: Yes (Other)
  Sender: TAKEDA
  Company Number: CA-TAKEDA-2025TUS067500

PATIENT
  Sex: Male

DRUGS (3)
  1. VEDOLIZUMAB [Suspect]
     Active Substance: VEDOLIZUMAB
     Indication: Colitis ulcerative
  2. FOLIC ACID [Concomitant]
     Active Substance: FOLIC ACID
  3. MESALAMINE [Concomitant]
     Active Substance: MESALAMINE

REACTIONS (7)
  - Rectal haemorrhage [Unknown]
  - Diarrhoea [Unknown]
  - Faeces soft [Unknown]
  - Eye irritation [Not Recovered/Not Resolved]
  - Frequent bowel movements [Unknown]
  - Malaise [Unknown]
  - Abdominal pain [Unknown]
